FAERS Safety Report 9027827 (Version 1)
Quarter: 2013Q1

REPORT INFORMATION
  Report Type: Spontaneous
  Country: RU (occurrence: RU)
  Receive Date: 20130124
  Receipt Date: 20130124
  Transmission Date: 20140127
  Serious: Yes (Other)
  Sender: FDA-Public Use
  Company Number: RU-JNJFOC-20130108211

PATIENT
  Age: 24 Year
  Sex: Female

DRUGS (1)
  1. NIZORAL [Suspect]
     Indication: VULVOVAGINAL CANDIDIASIS
     Route: 048
     Dates: start: 20130114, end: 20130114

REACTIONS (7)
  - Syncope [Recovered/Resolved]
  - Asphyxia [Recovered/Resolved]
  - Localised oedema [Recovered/Resolved]
  - Vomiting [Recovered/Resolved]
  - Pruritus [Recovered/Resolved]
  - Foaming at mouth [Recovered/Resolved]
  - Nausea [Recovered/Resolved]
